FAERS Safety Report 16406669 (Version 3)
Quarter: 2020Q1

REPORT INFORMATION
  Report Type: Report from Study
  Country: PL (occurrence: PL)
  Receive Date: 20190607
  Receipt Date: 20200313
  Transmission Date: 20200409
  Serious: Yes (Hospitalization, Other)
  Sender: FDA-Public Use
  Company Number: PL-BRISTOL-MYERS SQUIBB COMPANY-BMS-2019-054466

PATIENT
  Age: 62 Year
  Sex: Male

DRUGS (12)
  1. POLHUMIN MIX-3 [Concomitant]
     Indication: DIABETES MELLITUS
     Dosage: 12 INTERNATIONAL UNIT, BID
     Route: 058
     Dates: start: 2017
  2. BEMPEGALDESLEUKIN [Suspect]
     Active Substance: BEMPEGALDESLEUKIN
     Indication: NON-SMALL CELL LUNG CANCER
     Dosage: 0.006 MILLIGRAM/KILOGRAM, Q3WK
     Route: 042
     Dates: start: 20180403
  3. CLEXANE [Concomitant]
     Active Substance: ENOXAPARIN SODIUM
     Indication: OEDEMA PERIPHERAL
     Dosage: 0.4 MILLILITER, QD
     Route: 058
     Dates: start: 20181002
  4. KREON [Concomitant]
     Active Substance: PANCRELIPASE
     Indication: PANCREATITIS ACUTE
     Dosage: 150 MILLIGRAM, BID
     Route: 048
     Dates: start: 1998
  5. HEPA-MERZ INFUSION [Concomitant]
     Indication: HYPERTHYROIDISM
     Dosage: 1 INTERNATIONAL UNIT, TID
     Route: 048
     Dates: start: 20180419
  6. THYROZOL [Concomitant]
     Active Substance: METHIMAZOLE
     Indication: HYPERTHYROIDISM
     Dosage: 20 MILLIGRAM, QD
     Route: 048
     Dates: start: 20180515
  7. NIVOLUMAB [Suspect]
     Active Substance: NIVOLUMAB
     Indication: NON-SMALL CELL LUNG CANCER
     Dosage: 360 MILLIGRAM, Q3WK
     Route: 042
     Dates: start: 20180403
  8. OMSAL [Concomitant]
     Active Substance: TAMSULOSIN HYDROCHLORIDE
     Indication: BENIGN PROSTATIC HYPERPLASIA
     Dosage: 0.4 MILLIGRAM, QD
     Route: 048
  9. LYRICA [Concomitant]
     Active Substance: PREGABALIN
     Indication: PROPHYLAXIS
     Dosage: 75 MILLIGRAM, BID
     Route: 048
     Dates: start: 201710
  10. LEVOTHYROXINE. [Concomitant]
     Active Substance: LEVOTHYROXINE
     Indication: HYPOTHYROIDISM
     Dosage: 175 MICROGRAM, QD
     Route: 048
     Dates: start: 20181228
  11. METFORMIN [Concomitant]
     Active Substance: METFORMIN HYDROCHLORIDE
     Indication: DIABETES MELLITUS
     Dosage: 500 MILLIGRAM, QD
     Route: 048
     Dates: start: 2008
  12. PROPRANOLOL [Concomitant]
     Active Substance: PROPRANOLOL HYDROCHLORIDE
     Indication: PRODUCT USED FOR UNKNOWN INDICATION
     Dosage: 1 DOSAGE FORM
     Route: 065

REACTIONS (1)
  - Pneumocystis jirovecii pneumonia [Recovered/Resolved]

NARRATIVE: CASE EVENT DATE: 20190529
